FAERS Safety Report 5506633-3 (Version None)
Quarter: 2007Q4

REPORT INFORMATION
  Report Type: 
  Country: None (occurrence: None)
  Receive Date: 20071101
  Receipt Date: 20071015
  Transmission Date: 20080405
  Serious: No
  Sender: FDA-Public Use
  Company Number: 2007S1010085

PATIENT
  Sex: Male

DRUGS (1)
  1. AMNESTEEM [Suspect]

REACTIONS (1)
  - NEOPLASM PROGRESSION [None]
